FAERS Safety Report 21985237 (Version 1)
Quarter: 2023Q1

REPORT INFORMATION
  Report Type: Spontaneous
  Country: US (occurrence: None)
  Receive Date: 20230210
  Receipt Date: 20230210
  Transmission Date: 20230418
  Serious: Yes (Life-Threatening, Hospitalization, Disabling)
  Sender: FDA-Public Use
  Company Number: None

PATIENT
  Age: 12 Year
  Sex: Female
  Weight: 49.5 kg

DRUGS (2)
  1. AMITRIPTYLINE [Suspect]
     Active Substance: AMITRIPTYLINE
     Indication: Migraine
     Dosage: 3 TABLETS AT BEDTIME ORAL
     Route: 048
     Dates: start: 20221215, end: 20230210
  2. IRON [Concomitant]
     Active Substance: IRON

REACTIONS (2)
  - Suicidal ideation [None]
  - Suicide attempt [None]

NARRATIVE: CASE EVENT DATE: 20230128
